FAERS Safety Report 8854235 (Version 1)
Quarter: 2012Q4

REPORT INFORMATION
  Report Type: Spontaneous
  Country: US (occurrence: None)
  Receive Date: 20121022
  Receipt Date: 20121022
  Transmission Date: 20130627
  Serious: Yes (Hospitalization)
  Sender: FDA-Public Use
  Company Number: None

PATIENT
  Age: 69 Year
  Sex: Female

DRUGS (8)
  1. REVLIMID 5 MG CELGENE [Suspect]
     Indication: MYELODYSPLASTIC SYNDROME
     Dosage: 5 mg daily by mouth
     Route: 048
     Dates: start: 201208
  2. ASA [Concomitant]
  3. CLOPIDOGREL [Concomitant]
  4. METOPROLOL [Concomitant]
  5. ATORVASTATIN [Concomitant]
  6. LETROZOLE [Concomitant]
  7. TEMAZEPAM [Concomitant]
  8. NORCO [Concomitant]

REACTIONS (5)
  - Pancytopenia [None]
  - Arthralgia [None]
  - Joint injury [None]
  - Neutropenia [None]
  - Transfusion reaction [None]
